FAERS Safety Report 24056757 (Version 1)
Quarter: 2024Q3

REPORT INFORMATION
  Report Type: Report from Study
  Country: US (occurrence: US)
  Receive Date: 20240705
  Receipt Date: 20240705
  Transmission Date: 20241017
  Serious: Yes (Other)
  Sender: ABBVIE
  Company Number: US-ABBVIE-5826110

PATIENT
  Sex: Female

DRUGS (1)
  1. RINVOQ [Suspect]
     Active Substance: UPADACITINIB
     Indication: Rheumatoid arthritis
     Route: 048
     Dates: start: 20211230

REACTIONS (4)
  - Oophorectomy [Unknown]
  - Ovarian cyst [Not Recovered/Not Resolved]
  - Hysterectomy [Unknown]
  - Pain [Unknown]

NARRATIVE: CASE EVENT DATE: 20220101
